FAERS Safety Report 7684705 (Version 3)
Quarter: 2013Q1

REPORT INFORMATION
  Report Type: Spontaneous
  Country: US (occurrence: US)
  Receive Date: 20101129
  Receipt Date: 20130329
  Transmission Date: 20140127
  Serious: Yes (Hospitalization, Other)
  Sender: FDA-Public Use
  Company Number: US-ROCHE-722550

PATIENT
  Age: 38 Year
  Sex: Female
  Weight: 47.6 kg

DRUGS (3)
  1. ACCUTANE [Suspect]
     Indication: ACNE CYSTIC
     Dosage: RECEIVED THERAPY TWICE
     Route: 048
     Dates: start: 1998, end: 1999
  2. ACCUTANE [Suspect]
     Route: 048
     Dates: start: 20000306, end: 200005
  3. ADVIL [Concomitant]

REACTIONS (13)
  - Colitis ulcerative [Not Recovered/Not Resolved]
  - Intestinal polyp [Unknown]
  - Gastrointestinal injury [Unknown]
  - Inflammatory bowel disease [Unknown]
  - Gastrointestinal disorder [Unknown]
  - Duodenitis [Unknown]
  - Iritis [Unknown]
  - Depression [Unknown]
  - Dry skin [Unknown]
  - Chapped lips [Unknown]
  - Irritable bowel syndrome [Unknown]
  - Costochondritis [Unknown]
  - Oropharyngeal pain [Unknown]
